FAERS Safety Report 25425293 (Version 4)
Quarter: 2025Q3

REPORT INFORMATION
  Report Type: Report from Study
  Country: CO (occurrence: CO)
  Receive Date: 20250611
  Receipt Date: 20250923
  Transmission Date: 20251021
  Serious: Yes (Hospitalization, Other)
  Sender: NOVARTIS
  Company Number: CO-002147023-NVSC2025CO081429

PATIENT
  Age: 62 Year
  Sex: Female
  Weight: 70 kg

DRUGS (11)
  1. FEMARA [Suspect]
     Active Substance: LETROZOLE
     Indication: Breast cancer metastatic
     Dosage: 2.5 MG, QD
     Route: 048
     Dates: start: 20231220
  2. FEMARA [Suspect]
     Active Substance: LETROZOLE
     Indication: Hormone receptor positive HER2 negative breast cancer
  3. KISQALI [Suspect]
     Active Substance: RIBOCICLIB SUCCINATE
     Indication: Breast cancer metastatic
     Dosage: 600 MG, QD
     Route: 048
     Dates: start: 20240105
  4. KISQALI [Suspect]
     Active Substance: RIBOCICLIB SUCCINATE
     Indication: Hormone receptor positive HER2 negative breast cancer
     Route: 065
     Dates: start: 20250512
  5. KISQALI [Suspect]
     Active Substance: RIBOCICLIB SUCCINATE
     Dosage: 600 MG, QMO
     Route: 048
     Dates: end: 20250619
  6. PREGABALIN [Suspect]
     Active Substance: PREGABALIN
     Indication: Product used for unknown indication
     Dosage: 75 MG, QD
     Route: 065
  7. CALCIUM CITRATE [Concomitant]
     Active Substance: CALCIUM CITRATE
     Indication: Product used for unknown indication
     Route: 065
  8. CALCIUM CITRATE [Concomitant]
     Active Substance: CALCIUM CITRATE
     Dosage: 1 DOSAGE FORM, QD (1 X  1500MG / 200 IU)
     Route: 048
  9. LOSARTAN [Concomitant]
     Active Substance: LOSARTAN
     Indication: Product used for unknown indication
     Dosage: 50 MG, BID (IN THE MORNING AT NIGHT)
     Route: 065
  10. AMLODIPINE [Concomitant]
     Active Substance: AMLODIPINE BESYLATE
     Indication: Product used for unknown indication
     Dosage: 5 MG, QD
     Route: 065
  11. DOLEX FORTE [Concomitant]
     Active Substance: ACETAMINOPHEN\ASPIRIN\CAFFEINE
     Indication: Pain
     Route: 065

REACTIONS (13)
  - Malaise [Not Recovered/Not Resolved]
  - Vertebral lesion [Unknown]
  - Headache [Not Recovered/Not Resolved]
  - Pyrexia [Recovering/Resolving]
  - Crying [Recovering/Resolving]
  - Neck pain [Not Recovered/Not Resolved]
  - Illness [Unknown]
  - Product availability issue [Unknown]
  - General physical health deterioration [Unknown]
  - Asthenia [Not Recovered/Not Resolved]
  - Discouragement [Not Recovered/Not Resolved]
  - Back pain [Unknown]
  - Off label use [Unknown]

NARRATIVE: CASE EVENT DATE: 20250822
